FAERS Safety Report 7941939-X (Version None)
Quarter: 2011Q4

REPORT INFORMATION
  Report Type: 
  Country: None (occurrence: None)
  Receive Date: 20111128
  Receipt Date: 20111117
  Transmission Date: 20120403
  Serious: Yes (Other)
  Sender: FDA-Public Use
  Company Number: US-UCBSA-046009

PATIENT
  Age: 22 Year
  Sex: Female

DRUGS (4)
  1. TOPAMAX [Concomitant]
     Dosage: UNKNOWN DOSE REDUCED
  2. VIMPAT [Suspect]
  3. TOPAMAX [Concomitant]
  4. LAMICTAL [Concomitant]

REACTIONS (1)
  - PANCREATITIS [None]
